FAERS Safety Report 17795532 (Version 1)
Quarter: 2020Q2

REPORT INFORMATION
  Report Type: Spontaneous
  Country: CN (occurrence: CN)
  Receive Date: 20200516
  Receipt Date: 20200516
  Transmission Date: 20200714
  Serious: Yes (Other)
  Sender: FDA-Public Use
  Company Number: CN-ROCHE-2599734

PATIENT
  Age: 50 Year
  Sex: Male

DRUGS (9)
  1. BEVACIZUMAB. [Suspect]
     Active Substance: BEVACIZUMAB
     Indication: METASTASES TO LIVER
  2. IRINOTECAN [Concomitant]
     Active Substance: IRINOTECAN
     Indication: RECTAL CANCER
     Route: 065
     Dates: start: 20190419
  3. IRINOTECAN [Concomitant]
     Active Substance: IRINOTECAN
     Indication: METASTASES TO LIVER
     Route: 065
     Dates: start: 20190502
  4. IRINOTECAN [Concomitant]
     Active Substance: IRINOTECAN
     Route: 065
     Dates: start: 20190820
  5. CAPECITABINE. [Suspect]
     Active Substance: CAPECITABINE
     Indication: METASTASES TO LIVER
  6. CAPECITABINE. [Suspect]
     Active Substance: CAPECITABINE
     Indication: RECTAL CANCER
     Dosage: SUBSEQUENT DOSE ON 21/NOV/2018, 04/JAN/2019, 14/MAR/2019, 19/APR/2019, 02/MAY/2019, 20/AUG/2019
     Route: 048
     Dates: start: 20181013
  7. BEVACIZUMAB. [Suspect]
     Active Substance: BEVACIZUMAB
     Indication: RECTAL CANCER
     Dosage: SUBSEQUENT DOSE ON 04/JAN/2019, 14/MAR/2019, 19/APR/2019, 02/MAY/2019, 20/AUG/2019
     Route: 065
     Dates: start: 20181121
  8. OXALIPLATIN. [Concomitant]
     Active Substance: OXALIPLATIN
     Indication: METASTASES TO LIVER
     Dosage: SUBSEQUENT DOSE ON 21/NOV/2018, 04/JAN/2019, 14/MAR/2019, 19/APR/2019, 02/MAY/2019, 20/AUG/2019
     Route: 065
     Dates: start: 20181013
  9. OXALIPLATIN. [Concomitant]
     Active Substance: OXALIPLATIN
     Indication: RECTAL CANCER

REACTIONS (7)
  - Soft tissue swelling [Unknown]
  - Emphysema [Unknown]
  - Arthropathy [Unknown]
  - Cholecystitis chronic [Unknown]
  - Renal cyst [Unknown]
  - Lymphadenopathy [Unknown]
  - Hepatic cyst [Unknown]
